FAERS Safety Report 13916522 (Version 4)
Quarter: 2017Q3

REPORT INFORMATION
  Report Type: Report from Study
  Country: FR (occurrence: FR)
  Receive Date: 20170829
  Receipt Date: 20170929
  Transmission Date: 20171127
  Serious: Yes (Death, Hospitalization)
  Sender: FDA-Public Use
  Company Number: FR-TAIHO ONCOLOGY INC-JPTT171052

PATIENT
  Age: 47 Year
  Sex: Female
  Weight: 46 kg

DRUGS (7)
  1. PARACETAMOL [Concomitant]
     Active Substance: ACETAMINOPHEN
     Indication: PAIN
     Dosage: 1 G, QD
     Route: 048
     Dates: start: 20170701
  2. LONSURF [Suspect]
     Active Substance: TIPIRACIL HYDROCHLORIDE\TRIFLURIDINE
     Indication: COLORECTAL CANCER METASTATIC
     Dosage: 50 MG (35MG/M2) BID, ORALLY, ON DAYS 1-5 AND 8-12 OF EACH 28-DAY CYCLE)
     Route: 048
     Dates: start: 20170707, end: 20170718
  3. METHADONE HYDROCHLORIDE. [Concomitant]
     Active Substance: METHADONE HYDROCHLORIDE
     Dosage: 55 MG, BID
     Route: 048
     Dates: start: 20170705
  4. DIFFU K [Concomitant]
     Active Substance: POTASSIUM CHLORIDE
     Indication: HYPOKALAEMIA
     Dosage: 600 MG, TID
     Route: 048
     Dates: start: 20170703
  5. LYRICA [Concomitant]
     Active Substance: PREGABALIN
     Indication: PAIN
     Dosage: 300 MG, BID
     Route: 048
     Dates: start: 20170703
  6. METHADONE HYDROCHLORIDE. [Concomitant]
     Active Substance: METHADONE HYDROCHLORIDE
     Indication: PAIN
     Dosage: 40 MG, BID
     Route: 048
     Dates: start: 20170615, end: 20170705
  7. SOLU-MEDROL [Concomitant]
     Active Substance: METHYLPREDNISOLONE SODIUM SUCCINATE
     Indication: PAIN
     Dosage: 60 MG, QD
     Route: 048
     Dates: start: 20170703

REACTIONS (4)
  - Device related infection [Recovered/Resolved]
  - Oedema peripheral [Recovering/Resolving]
  - Jugular vein thrombosis [Recovered/Resolved]
  - Malignant neoplasm progression [Fatal]

NARRATIVE: CASE EVENT DATE: 20170712
